FAERS Safety Report 5626284-X (Version None)
Quarter: 2008Q1

REPORT INFORMATION
  Report Type: 
  Country: None (occurrence: None)
  Receive Date: 20080214
  Receipt Date: 20080204
  Transmission Date: 20080703
  Serious: Yes (Hospitalization, Other)
  Sender: FDA-Public Use
  Company Number: GB-ELI_LILLY_AND_COMPANY-GB200802000734

PATIENT
  Age: 75 Year
  Sex: Male

DRUGS (1)
  1. GEMZAR [Suspect]
     Indication: PANCREATIC CARCINOMA
     Dosage: 1G/M2
     Route: 065
     Dates: start: 20070201, end: 20070201

REACTIONS (3)
  - BODY TEMPERATURE INCREASED [None]
  - HYPOTENSION [None]
  - RESPIRATORY RATE INCREASED [None]
